FAERS Safety Report 24560593 (Version 1)
Quarter: 2024Q4

REPORT INFORMATION
  Report Type: Spontaneous
  Country: US (occurrence: None)
  Receive Date: 20241028
  Receipt Date: 20241028
  Transmission Date: 20250115
  Serious: Yes (Hospitalization)
  Sender: Public
  Company Number: None

PATIENT
  Age: 80 Year
  Sex: Male
  Weight: 68 kg

DRUGS (2)
  1. DOXYCYCLINE HYCLATE [Suspect]
     Active Substance: DOXYCYCLINE HYCLATE
     Indication: Chronic obstructive pulmonary disease
     Dosage: OTHER FREQUENCY : ONCE;?
     Route: 048
     Dates: start: 20240611, end: 20240611
  2. CEFTRIAXONE [Suspect]
     Active Substance: CEFTRIAXONE
     Dosage: OTHER FREQUENCY : ONCE;?
     Route: 042
     Dates: start: 20240611, end: 20240611

REACTIONS (3)
  - Anaphylactic reaction [None]
  - Hospice care [None]
  - Lung neoplasm malignant [None]

NARRATIVE: CASE EVENT DATE: 20240611
